FAERS Safety Report 4687537-5 (Version None)
Quarter: 2005Q2

REPORT INFORMATION
  Report Type: 
  Country: None (occurrence: None)
  Receive Date: 20050311
  Receipt Date: 20050311
  Transmission Date: 20051028
  Serious: Yes (Life-Threatening)
  Sender: FDA-Public Use
  Company Number: None

PATIENT
  Sex: Female

DRUGS (1)
  1. DIGITEK 0.125 [Suspect]
     Indication: ATRIAL FIBRILLATION
     Dosage: 3QD
     Dates: start: 20041001

REACTIONS (2)
  - ASTHENIA [None]
  - MALAISE [None]
